FAERS Safety Report 6131593-4 (Version None)
Quarter: 2009Q1

REPORT INFORMATION
  Report Type: 
  Country: None (occurrence: None)
  Receive Date: 20090325
  Receipt Date: 20081114
  Transmission Date: 20090719
  Serious: No
  Sender: FDA-Public Use
  Company Number: US-BRISTOL-MYERS SQUIBB COMPANY-14408447

PATIENT
  Age: 6 Decade
  Sex: Male

DRUGS (4)
  1. ERBITUX [Suspect]
     Indication: COLORECTAL CANCER METASTATIC
     Dosage: TAKEN 1 DOSE
  2. TYLENOL [Concomitant]
  3. BENADRYL [Concomitant]
  4. DECADRON [Concomitant]

REACTIONS (1)
  - INFUSION RELATED REACTION [None]
